FAERS Safety Report 15571079 (Version 2)
Quarter: 2018Q4

REPORT INFORMATION
  Report Type: Spontaneous
  Country: FR (occurrence: FR)
  Receive Date: 20181031
  Receipt Date: 20181112
  Transmission Date: 20190205
  Serious: Yes (Hospitalization, Other)
  Sender: FDA-Public Use
  Company Number: FR-PFIZER INC-2018441557

PATIENT
  Age: 32 Year
  Sex: Female
  Weight: 47 kg

DRUGS (11)
  1. DUPIXENT [Suspect]
     Active Substance: DUPILUMAB
     Dosage: 300 MG,QOW
     Route: 058
     Dates: start: 20180409, end: 20180409
  2. IBUPROFEN. [Suspect]
     Active Substance: IBUPROFEN
     Indication: URINARY TRACT INFECTION
     Dosage: UNK
     Route: 048
     Dates: start: 20180517
  3. DUPIXENT [Suspect]
     Active Substance: DUPILUMAB
     Indication: DERMATITIS ATOPIC
     Dosage: 600 MG,1X
     Route: 058
     Dates: start: 20171120, end: 20171120
  4. CETIRIZINE HYDROCHLORIDE. [Suspect]
     Active Substance: CETIRIZINE HYDROCHLORIDE
     Indication: DERMATITIS ATOPIC
     Dosage: 1 DF, QD
     Route: 048
     Dates: start: 2017
  5. VALACICLOVIR [Suspect]
     Active Substance: VALACYCLOVIR HYDROCHLORIDE
     Indication: HERPES SIMPLEX
     Dosage: 1000 MG, QD
     Route: 048
     Dates: start: 2017
  6. DUPIXENT [Suspect]
     Active Substance: DUPILUMAB
     Dosage: 300 MG,QOW
     Route: 058
     Dates: start: 20171204
  7. NAABAK [ISOSPAGLUMIC ACID SODIUM] [Suspect]
     Active Substance: ISOSPAGLUMIC ACID
     Indication: CONJUNCTIVITIS
     Dosage: UNK
     Route: 047
     Dates: start: 2017
  8. MONURIL [Concomitant]
     Active Substance: FOSFOMYCIN TROMETHAMINE
     Indication: URINARY TRACT INFECTION
     Dosage: 1 DF
     Route: 048
     Dates: start: 20180517, end: 20180517
  9. MONAZOL [Concomitant]
     Active Substance: SERTACONAZOLE NITRATE
     Indication: CANDIDA INFECTION
     Dosage: 1 DF
     Route: 067
     Dates: start: 20180516, end: 20180516
  10. DUPIXENT [Suspect]
     Active Substance: DUPILUMAB
     Dosage: 300 MG,QOW
     Route: 058
     Dates: start: 20180326
  11. FURADANTINE [Concomitant]
     Active Substance: NITROFURANTOIN
     Indication: URINARY TRACT INFECTION
     Dosage: 3 DF, QD
     Route: 048
     Dates: start: 20180517, end: 20180522

REACTIONS (1)
  - Abortion spontaneous [Recovered/Resolved]

NARRATIVE: CASE EVENT DATE: 20180612
